FAERS Safety Report 17001876 (Version 3)
Quarter: 2019Q4

REPORT INFORMATION
  Report Type: Spontaneous
  Country: JP (occurrence: JP)
  Receive Date: 20191106
  Receipt Date: 20191219
  Transmission Date: 20200122
  Serious: Yes (Other)
  Sender: FDA-Public Use
  Company Number: JP-BEH-2019108803

PATIENT
  Age: 3 Year
  Weight: 11.9 kg

DRUGS (11)
  1. FIBROGAMMIN P [Suspect]
     Active Substance: FACTOR XIII CONCENTRATE (HUMAN)
     Indication: COAGULATION FACTOR XIII LEVEL DECREASED
     Dosage: 3 VIALS; FREQUENCY 1 DAY
     Route: 065
     Dates: start: 20191027, end: 20191027
  2. PREDONINE [PREDNISOLONE SODIUM SUCCINATE] [Concomitant]
     Active Substance: PREDNISOLONE SODIUM SUCCINATE
     Dosage: 20 MILLIGRAM, QD
     Route: 041
     Dates: start: 20191026, end: 20191105
  3. FIBROGAMMIN P [Suspect]
     Active Substance: FACTOR XIII CONCENTRATE (HUMAN)
     Indication: BACK PAIN
  4. FIBROGAMMIN P [Suspect]
     Active Substance: FACTOR XIII CONCENTRATE (HUMAN)
     Indication: VASCULAR PURPURA
     Dosage: 3 VIALS, FREQUENCY 1 DAY
     Route: 041
     Dates: start: 20191013, end: 20191015
  5. PREDONINE [PREDNISOLONE SODIUM SUCCINATE] [Concomitant]
     Active Substance: PREDNISOLONE SODIUM SUCCINATE
     Indication: HENOCH-SCHONLEIN PURPURA
     Dosage: 20 MILLIGRAM, QD
     Route: 041
     Dates: start: 20191012, end: 20191025
  6. FAMOTIDINE. [Concomitant]
     Active Substance: FAMOTIDINE
     Indication: ADVERSE REACTION
     Dosage: 10 MILLIGRAM, QD
     Route: 042
     Dates: start: 20191012, end: 20191025
  7. VITAMEDIN [CYANOCOBALAMIN;PYRIDOXINE HYDROCHLORIDE;THIAMINE HYDROCHLOR [Concomitant]
     Indication: VITAMIN SUPPLEMENTATION
     Dosage: 1 CAPSULE, QD
     Route: 048
     Dates: start: 20191017, end: 20191101
  8. ASPIRIN [ACETYLSALICYLIC ACID] [Concomitant]
     Active Substance: ASPIRIN
     Indication: PLATELET COUNT INCREASED
     Dosage: 30 MILLIGRAM
     Route: 048
     Dates: start: 20191021, end: 20191024
  9. FIBROGAMMIN P [Suspect]
     Active Substance: FACTOR XIII CONCENTRATE (HUMAN)
     Indication: HENOCH-SCHONLEIN PURPURA
  10. FIBROGAMMIN P [Suspect]
     Active Substance: FACTOR XIII CONCENTRATE (HUMAN)
     Indication: HAEMATOCHEZIA
  11. FAMOTIDINE. [Concomitant]
     Active Substance: FAMOTIDINE
     Dosage: 10 MILLIGRAM, QD
     Route: 042
     Dates: start: 20191026, end: 20191105

REACTIONS (9)
  - Pyrexia [Recovered/Resolved]
  - No adverse event [Unknown]
  - Wheezing [Recovered/Resolved]
  - Anaphylactic reaction [Recovered/Resolved]
  - Rales [Recovered/Resolved]
  - Dyspnoea [Recovered/Resolved]
  - Product use in unapproved indication [Unknown]
  - Prolonged expiration [Recovered/Resolved]
  - Cough [Recovered/Resolved]

NARRATIVE: CASE EVENT DATE: 20191027
